FAERS Safety Report 9189181 (Version 1)
Quarter: 2013Q1

REPORT INFORMATION
  Report Type: Report from Study
  Country: PT (occurrence: PT)
  Receive Date: 20130326
  Receipt Date: 20130326
  Transmission Date: 20140127
  Serious: Yes (Other)
  Sender: FDA-Public Use
  Company Number: PT-ROCHE-1203595

PATIENT
  Sex: 0

DRUGS (10)
  1. RANIBIZUMAB [Suspect]
     Indication: AGE-RELATED MACULAR DEGENERATION
     Route: 050
     Dates: start: 20101117
  2. RANIBIZUMAB [Suspect]
     Route: 050
     Dates: start: 20101222
  3. RANIBIZUMAB [Suspect]
     Route: 050
     Dates: start: 20110202
  4. RANIBIZUMAB [Suspect]
     Route: 050
     Dates: start: 20110629, end: 20110629
  5. BISOPROLOL [Concomitant]
  6. DAFLON (PORTUGAL) [Concomitant]
  7. SERTRALINE [Concomitant]
  8. HYTACAND [Concomitant]
  9. ZANOSAR [Concomitant]
  10. TERCIAN [Concomitant]

REACTIONS (2)
  - Age-related macular degeneration [Unknown]
  - Choroidal neovascularisation [Unknown]
